FAERS Safety Report 11802189 (Version 3)
Quarter: 2019Q4

REPORT INFORMATION
  Report Type: Spontaneous
  Country: US (occurrence: US)
  Receive Date: 20151204
  Receipt Date: 20191021
  Transmission Date: 20200122
  Serious: Yes (Other)
  Sender: FDA-Public Use
  Company Number: US-PFIZER INC-2015421696

PATIENT
  Age: 58 Year
  Sex: Male

DRUGS (5)
  1. CIALIS [Suspect]
     Active Substance: TADALAFIL
     Indication: ERECTILE DYSFUNCTION
     Dosage: 20MG X 2 PER WEEK
     Route: 048
     Dates: start: 20050510, end: 20050510
  2. FLOMAX [MORNIFLUMATE] [Concomitant]
     Active Substance: MORNIFLUMATE
     Indication: BENIGN PROSTATIC HYPERPLASIA
     Dosage: UNK, 1X/DAY
     Dates: start: 20020213, end: 20020223
  3. VIAGRA [Suspect]
     Active Substance: SILDENAFIL CITRATE
     Indication: ERECTILE DYSFUNCTION
     Dosage: 100MG X 2 PER WEEK
     Route: 048
     Dates: start: 20020220, end: 20050406
  4. TAMSULOSIN [Concomitant]
     Active Substance: TAMSULOSIN
     Indication: BENIGN PROSTATIC HYPERPLASIA
     Dosage: 0.4 MG, 1X/DAY
     Dates: start: 20140120, end: 20141014
  5. VIAGRA [Suspect]
     Active Substance: SILDENAFIL CITRATE
     Dosage: 100MG X 2 PER WEEK
     Route: 048
     Dates: start: 20050706, end: 20150102

REACTIONS (1)
  - Malignant melanoma [Unknown]

NARRATIVE: CASE EVENT DATE: 20050526
